FAERS Safety Report 17251920 (Version 1)
Quarter: 2020Q1

REPORT INFORMATION
  Report Type: Spontaneous
  Country: FR (occurrence: FR)
  Receive Date: 20200109
  Receipt Date: 20200109
  Transmission Date: 20200409
  Serious: Yes (Life-Threatening, Hospitalization, Other)
  Sender: FDA-Public Use
  Company Number: FR-PFIZER INC-2020008089

PATIENT
  Age: 32 Year
  Sex: Male

DRUGS (3)
  1. PAROXETINE MESILATE [Suspect]
     Active Substance: PAROXETINE MESYLATE
     Dosage: 1 DF, 1X/DAY
     Route: 048
     Dates: start: 20191118, end: 20191118
  2. RISPERIDONE. [Suspect]
     Active Substance: RISPERIDONE
     Dosage: 1 DF, 1X/DAY
     Route: 048
     Dates: start: 20191118, end: 20191118
  3. ALPRAZOLAM. [Suspect]
     Active Substance: ALPRAZOLAM
     Dosage: 1 DF, 1X/DAY
     Route: 048
     Dates: start: 20191118, end: 20191118

REACTIONS (2)
  - Coma [Recovered/Resolved]
  - Suicide attempt [Unknown]

NARRATIVE: CASE EVENT DATE: 20191118
